FAERS Safety Report 14626862 (Version 1)
Quarter: 2018Q1

REPORT INFORMATION
  Report Type: Spontaneous
  Country: US (occurrence: US)
  Receive Date: 20180312
  Receipt Date: 20180312
  Transmission Date: 20180509
  Serious: Yes (Hospitalization)
  Sender: FDA-Public Use
  Company Number: US-JNJFOC-20180311167

PATIENT
  Sex: Female

DRUGS (1)
  1. IMBRUVICA [Suspect]
     Active Substance: IBRUTINIB
     Indication: GRAFT VERSUS HOST DISEASE
     Route: 048
     Dates: start: 201802, end: 2018

REACTIONS (3)
  - Atrial fibrillation [Unknown]
  - Ventricular tachycardia [Unknown]
  - Facial bones fracture [Unknown]

NARRATIVE: CASE EVENT DATE: 2018
